FAERS Safety Report 16837630 (Version 1)
Quarter: 2019Q3

REPORT INFORMATION
  Report Type: Spontaneous
  Country: US (occurrence: US)
  Receive Date: 20190923
  Receipt Date: 20190923
  Transmission Date: 20191005
  Serious: No
  Sender: FDA-Public Use
  Company Number: US-AUROBINDO-AUR-APL-2019-029134

PATIENT

DRUGS (2)
  1. CETIRIZINE HYDROCHLORIDE TABLETS USP 10MG [Suspect]
     Active Substance: CETIRIZINE HYDROCHLORIDE
     Dosage: UNK, 04 TABLETS AT A TIME
     Route: 065
  2. CETIRIZINE HYDROCHLORIDE TABLETS USP 10MG [Suspect]
     Active Substance: CETIRIZINE HYDROCHLORIDE
     Indication: PRODUCT USED FOR UNKNOWN INDICATION
     Dosage: UNK
     Route: 065

REACTIONS (2)
  - Product dose omission [Unknown]
  - Overdose [Unknown]
